FAERS Safety Report 13959866 (Version 3)
Quarter: 2018Q4

REPORT INFORMATION
  Report Type: Spontaneous
  Country: US (occurrence: US)
  Receive Date: 20170911
  Receipt Date: 20181221
  Transmission Date: 20190204
  Serious: Yes (Other)
  Sender: FDA-Public Use
  Company Number: US-DSJP-DSU-2017-136588

PATIENT

DRUGS (3)
  1. BENICAR [Suspect]
     Active Substance: OLMESARTAN MEDOXOMIL
     Indication: PRODUCT USED FOR UNKNOWN INDICATION
     Dosage: 20 MG, QD
     Route: 048
     Dates: start: 20100629, end: 20120327
  2. BENICAR [Suspect]
     Active Substance: OLMESARTAN MEDOXOMIL
     Dosage: 40 MG
     Dates: end: 20100629
  3. BENICAR HCT [Suspect]
     Active Substance: HYDROCHLOROTHIAZIDE\OLMESARTAN MEDOXOMIL
     Indication: PRODUCT USED FOR UNKNOWN INDICATION
     Dosage: 25-40
     Route: 048
     Dates: start: 20100628, end: 20120327

REACTIONS (9)
  - Dehydration [Unknown]
  - Weight decreased [Recovered/Resolved]
  - Erosive oesophagitis [Unknown]
  - Helicobacter infection [Unknown]
  - Gastritis [Recovering/Resolving]
  - Diarrhoea [Not Recovered/Not Resolved]
  - Gallbladder polyp [Unknown]
  - Acute kidney injury [Recovered/Resolved]
  - Gastrooesophageal reflux disease [Unknown]

NARRATIVE: CASE EVENT DATE: 20081223
